FAERS Safety Report 18598837 (Version 1)
Quarter: 2020Q4

REPORT INFORMATION
  Report Type: Spontaneous
  Country: GB (occurrence: GB)
  Receive Date: 20201210
  Receipt Date: 20201210
  Transmission Date: 20210114
  Serious: Yes (Other)
  Sender: FDA-Public Use
  Company Number: GB-TEVA-2020-GB-1855871

PATIENT
  Age: 54 Year
  Sex: Female
  Weight: 77 kg

DRUGS (13)
  1. CO-AMOXICLAV [Concomitant]
     Active Substance: AMOXICILLIN\CLAVULANATE POTASSIUM
     Dosage: 3 DOSAGE FORMS
     Dates: start: 20201008, end: 20201015
  2. LORATADINE. [Concomitant]
     Active Substance: LORATADINE
     Dosage: 1 DOSAGE FORMS DAILY;
     Dates: start: 20201008, end: 20201105
  3. LEVOTHYROXINE. [Concomitant]
     Active Substance: LEVOTHYROXINE
     Dosage: 2 DOSAGE FORMS DAILY; EACH MORNING
     Dates: start: 20191220
  4. FOSTAIR [Concomitant]
     Active Substance: BECLOMETHASONE\FORMOTEROL
     Dosage: PUFFS, 4 DOSAGE FORMS
     Dates: start: 20200406
  5. DOXYCYCLINE. [Suspect]
     Active Substance: DOXYCYCLINE
     Dosage: TWO TO BE TAKEN IMMEDIATELY, THEN ONE DAILY OR AS DIRECTED (PLEASE COMPLETE THE COURSE)
     Dates: start: 20201008
  6. CALMURID [Concomitant]
     Dosage: TO HANDS, 1 DOSAGE FORMS
     Dates: start: 20191220
  7. BRALTUS [Concomitant]
     Active Substance: TIOTROPIUM BROMIDE
     Dosage: 1 DOSAGE FORMS
     Route: 055
     Dates: start: 20191220
  8. PREDNISOLONE. [Concomitant]
     Active Substance: PREDNISOLONE
     Dosage: AS DIRECTED FOR 5 DAYS, 8 DOSAGE FORMS
     Dates: start: 20201113
  9. AMOXICILLIN. [Concomitant]
     Active Substance: AMOXICILLIN
     Dosage: (PLEASE COMPLETE THE COURSE. CONTAINS PENICILLIN), 3 DOSAGE FORMS
     Dates: start: 20201113
  10. CLOBEX [Concomitant]
     Active Substance: CLOBETASOL PROPIONATE
     Dosage: APPLY, 1 DOSAGE FORMS
     Dates: start: 20191220, end: 20200827
  11. SALBUTAMOL [Concomitant]
     Active Substance: ALBUTEROL
     Dosage: ONE OR TWO PUFFS UP TO FOUR TIMES...
     Route: 055
     Dates: start: 20191220
  12. ATORVASTATIN [Concomitant]
     Active Substance: ATORVASTATIN
     Dosage: 1 DOSAGE FORMS DAILY; AT NIGHT
     Dates: start: 20200225
  13. METFORMIN [Concomitant]
     Active Substance: METFORMIN HYDROCHLORIDE
     Dosage: WITH FOOD, 3 DOSAGE FORMS
     Dates: start: 20200615

REACTIONS (1)
  - Hypoaesthesia [Recovered/Resolved]

NARRATIVE: CASE EVENT DATE: 20201113
